FAERS Safety Report 4869145-6 (Version None)
Quarter: 2005Q4

REPORT INFORMATION
  Report Type: 
  Country: None (occurrence: None)
  Receive Date: 20051228
  Receipt Date: 20051228
  Transmission Date: 20060501
  Serious: Yes (Hospitalization)
  Sender: FDA-Public Use
  Company Number: None

PATIENT
  Age: 61 Year
  Sex: Female
  Weight: 92.5338 kg

DRUGS (4)
  1. METHADONE HCL [Suspect]
     Indication: PAIN
     Dosage: 5 MG Q8 H
  2. OXYCONTIN [Suspect]
     Dosage: 40 MG BID
  3. CLONAZEPAM [Concomitant]
  4. PAXIL [Concomitant]

REACTIONS (2)
  - DRUG ABUSER [None]
  - DRUG TOXICITY [None]
